FAERS Safety Report 5012525-9 (Version None)
Quarter: 2006Q2

REPORT INFORMATION
  Report Type: 
  Country: None (occurrence: None)
  Receive Date: 20060411
  Receipt Date: 20060217
  Transmission Date: 20061013
  Serious: No
  Sender: FDA-Public Use
  Company Number: 2006S1000040

PATIENT
  Age: 54 Year
  Sex: Female
  Weight: 64 kg

DRUGS (12)
  1. CUBICIN [Suspect]
     Indication: BACTERAEMIA
     Dosage: 6MG/KG;Q24H; IV
     Route: 042
     Dates: start: 20060208
  2. CUBICIN [Suspect]
     Indication: ENTEROCOCCAL INFECTION
     Dosage: 6MG/KG;Q24H; IV
     Route: 042
     Dates: start: 20060208
  3. CIPROFLOXACIN HCL [Concomitant]
  4. GENTAMICIN [Concomitant]
  5. CELEBREX [Concomitant]
  6. LEVOTHYROXINE SODIUM [Concomitant]
  7. HYDROXYZINE [Concomitant]
  8. PANTOPRAZOLE [Concomitant]
  9. URSODIOL [Concomitant]
  10. VORICONAZOLE [Concomitant]
  11. PAXIL [Concomitant]
  12. HEPARIN [Concomitant]

REACTIONS (3)
  - BLOOD BILIRUBIN INCREASED [None]
  - CONDITION AGGRAVATED [None]
  - JAUNDICE [None]
